FAERS Safety Report 23500983 (Version 1)
Quarter: 2024Q1

REPORT INFORMATION
  Report Type: Spontaneous
  Country: US (occurrence: US)
  Receive Date: 20240208
  Receipt Date: 20240208
  Transmission Date: 20240410
  Serious: No
  Sender: FDA-Public Use
  Company Number: US-SANOFI-01933853

PATIENT
  Age: 36 Year
  Sex: Female

DRUGS (1)
  1. TOUJEO MAX [Suspect]
     Active Substance: INSULIN GLARGINE
     Indication: Type 1 diabetes mellitus
     Dosage: 14 UNITS IN THE MORNING AND 16 UNITS IN THE EVENING
     Route: 065
     Dates: start: 202311

REACTIONS (1)
  - Inappropriate schedule of product administration [Unknown]
